FAERS Safety Report 18863186 (Version 1)
Quarter: 2021Q1

REPORT INFORMATION
  Report Type: Spontaneous
  Country: US (occurrence: US)
  Receive Date: 20210208
  Receipt Date: 20210208
  Transmission Date: 20210420
  Serious: No
  Sender: FDA-Public Use
  Company Number: US-SLATE RUN PHARMACEUTICALS-21US000394

PATIENT

DRUGS (2)
  1. XARELTO [Concomitant]
     Active Substance: RIVAROXABAN
     Indication: PRODUCT USED FOR UNKNOWN INDICATION
     Dosage: UNK
     Route: 065
  2. BUPROPION HYDROCHLORIDE EXTENDED RELEASE USP (XL) [Suspect]
     Active Substance: BUPROPION HYDROCHLORIDE
     Indication: ANTIDEPRESSANT THERAPY
     Dosage: 150 MILLIGRAM, QD
     Route: 065
     Dates: start: 202012

REACTIONS (3)
  - Feeling abnormal [Unknown]
  - Tremor [Unknown]
  - Photopsia [Unknown]
